FAERS Safety Report 19034635 (Version 5)
Quarter: 2023Q2

REPORT INFORMATION
  Report Type: Report from Study
  Country: US (occurrence: US)
  Receive Date: 20210320
  Receipt Date: 20230410
  Transmission Date: 20230722
  Serious: Yes (Other)
  Sender: FDA-Public Use
  Company Number: US-TAKEDA-2021TUS015934

PATIENT
  Sex: Female
  Weight: 27 kg

DRUGS (15)
  1. HUMAN IMMUNOGLOBULIN G [Suspect]
     Active Substance: HUMAN IMMUNOGLOBULIN G
     Indication: Hypogammaglobulinaemia
     Dosage: 7 GRAM, Q2WEEKS
     Route: 058
     Dates: start: 20210303
  2. HUMAN IMMUNOGLOBULIN G [Suspect]
     Active Substance: HUMAN IMMUNOGLOBULIN G
     Indication: Immunodeficiency common variable
     Dosage: 5 GRAM, Q2WEEKS
     Route: 058
     Dates: start: 20210303
  3. ACETAMINOPHEN [Concomitant]
     Active Substance: ACETAMINOPHEN
  4. DIPHENHYDRAMINE [Concomitant]
     Active Substance: DIPHENHYDRAMINE
  5. EPINEPHRINE [Concomitant]
     Active Substance: EPINEPHRINE
  6. ALBUTEROL SULFATE [Concomitant]
     Active Substance: ALBUTEROL SULFATE
  7. FLONASE [Concomitant]
     Active Substance: FLUTICASONE PROPIONATE
     Dosage: UNK
  8. ZYRTEC-D [Concomitant]
     Active Substance: CETIRIZINE HYDROCHLORIDE\PSEUDOEPHEDRINE HYDROCHLORIDE
  9. Lmx [Concomitant]
  10. FLUTICASONE [Concomitant]
     Active Substance: FLUTICASONE
  11. LIDOCAINE AND PRILOCAINE [Concomitant]
     Active Substance: LIDOCAINE\PRILOCAINE
  12. ALBUTEROL SULFATE [Concomitant]
     Active Substance: ALBUTEROL SULFATE
  13. CHILDRENS CHEWABLE VITAMINS [Concomitant]
  14. Diphen elixir [Concomitant]
     Dosage: UNK
  15. FLUTICASONE PROPIONATE [Concomitant]
     Active Substance: FLUTICASONE PROPIONATE

REACTIONS (8)
  - Pneumonia [Unknown]
  - Eye swelling [Unknown]
  - Infusion site pruritus [Unknown]
  - Allergy to arthropod sting [Unknown]
  - Food allergy [Unknown]
  - COVID-19 [Unknown]
  - Viral infection [Unknown]
  - Infusion site extravasation [Unknown]
